FAERS Safety Report 5560497-0 (Version None)
Quarter: 2007Q4

REPORT INFORMATION
  Report Type: 
  Country: None (occurrence: None)
  Receive Date: 20071215
  Receipt Date: 20071106
  Transmission Date: 20080405
  Serious: No
  Sender: FDA-Public Use
  Company Number: US-ABBOTT-07P-163-0424247-00

PATIENT
  Sex: Female
  Weight: 53.572 kg

DRUGS (2)
  1. HUMIRA [Suspect]
     Indication: CROHN'S DISEASE
     Route: 058
     Dates: start: 20071023
  2. RIFAXIMIN [Concomitant]
     Indication: FLATULENCE

REACTIONS (3)
  - BREAST PAIN [None]
  - NASOPHARYNGITIS [None]
  - PNEUMONIA [None]
